FAERS Safety Report 8159061-9 (Version None)
Quarter: 2012Q1

REPORT INFORMATION
  Report Type: 
  Country: None (occurrence: None)
  Receive Date: 20120223
  Receipt Date: 20120213
  Transmission Date: 20120608
  Serious: Yes (Hospitalization)
  Sender: FDA-Public Use
  Company Number: JP-SANOFI-AVENTIS-2012SA004385

PATIENT
  Age: 79 Year
  Sex: Male

DRUGS (8)
  1. SYMMETREL [Concomitant]
  2. PROSTAL [Concomitant]
  3. LANSOPRAZOLE [Concomitant]
     Dates: end: 20120113
  4. MUCOSTA [Concomitant]
  5. PLAVIX [Suspect]
     Route: 048
     Dates: end: 20120113
  6. THEO-DUR [Concomitant]
  7. ALL OTHER THERAPEUTIC PRODUCTS [Concomitant]
  8. MAGNESIUM OXIDE [Concomitant]

REACTIONS (2)
  - PNEUMONIA [None]
  - LOSS OF CONSCIOUSNESS [None]
